FAERS Safety Report 15546932 (Version 2)
Quarter: 2019Q1

REPORT INFORMATION
  Report Type: Report from Study
  Country: US (occurrence: US)
  Receive Date: 20181024
  Receipt Date: 20190114
  Transmission Date: 20190417
  Serious: Yes (Hospitalization, Disabling, Other)
  Sender: FDA-Public Use
  Company Number: US-SA-2017SA052692

PATIENT
  Age: 64 Year
  Sex: Male

DRUGS (2)
  1. ALEMTUZUMAB [Suspect]
     Active Substance: ALEMTUZUMAB
     Indication: MULTIPLE SCLEROSIS
     Dosage: 12 MG,QD
     Route: 041
     Dates: start: 20160222, end: 20160226
  2. ALEMTUZUMAB [Suspect]
     Active Substance: ALEMTUZUMAB
     Dosage: 12 MG,QD
     Route: 041
     Dates: start: 20170227, end: 20170301

REACTIONS (16)
  - Urinary tract infection [Not Recovered/Not Resolved]
  - Asthenia [Recovered/Resolved]
  - Sepsis [Recovered/Resolved]
  - Gait disturbance [Not Recovered/Not Resolved]
  - Pain [Recovered/Resolved]
  - Therapeutic response decreased [Unknown]
  - Fall [Recovered/Resolved]
  - Drug monitoring procedure not performed [Not Recovered/Not Resolved]
  - Dysstasia [Not Recovered/Not Resolved]
  - Body temperature increased [Recovered/Resolved]
  - Herpes zoster [Recovered/Resolved]
  - Multiple sclerosis [Not Recovered/Not Resolved]
  - Melanocytic naevus [Recovered/Resolved]
  - Impaired driving ability [Not Recovered/Not Resolved]
  - Pyrexia [Recovered/Resolved]
  - Condition aggravated [Not Recovered/Not Resolved]

NARRATIVE: CASE EVENT DATE: 2016
